FAERS Safety Report 8906620 (Version 2)
Quarter: 2012Q4

REPORT INFORMATION
  Report Type: Report from Study
  Country: US (occurrence: US)
  Receive Date: 20121114
  Receipt Date: 20121116
  Transmission Date: 20130627
  Serious: Yes (Hospitalization)
  Sender: FDA-Public Use
  Company Number: US-JNJFOC-20121104805

PATIENT
  Age: 16 Year
  Sex: Male
  Weight: 58.2 kg

DRUGS (12)
  1. REMICADE [Suspect]
     Indication: INFLAMMATORY BOWEL DISEASE
     Route: 042
     Dates: start: 20090711
  2. FERROUS SULFATE [Concomitant]
  3. CALCIUM [Concomitant]
  4. VITAMIN D [Concomitant]
  5. NUTREN 2.0 [Concomitant]
  6. ALBUTEROL [Concomitant]
  7. OMEPRAZOLE [Concomitant]
  8. 5-ASA [Concomitant]
  9. CHOLECALCIFEROL [Concomitant]
  10. FLUTICASONE [Concomitant]
  11. SINGULAIR [Concomitant]
  12. KETOTIFEN FUMARATE [Concomitant]

REACTIONS (1)
  - Asthma [Recovered/Resolved]
